FAERS Safety Report 7449835-1 (Version None)
Quarter: 2011Q2

REPORT INFORMATION
  Report Type: 
  Country: None (occurrence: None)
  Receive Date: 20110421
  Receipt Date: 20110412
  Transmission Date: 20111010
  Serious: Yes (Hospitalization)
  Sender: FDA-Public Use
  Company Number: VER-2011-00320

PATIENT
  Age: 43 Year
  Sex: Male
  Weight: 215 kg

DRUGS (10)
  1. CRESTOR [Concomitant]
  2. CYCLOSET [Suspect]
     Indication: TYPE 2 DIABETES MELLITUS
     Dosage: 1.6 MG (1.6 MG,1 IN 1 D), PER ORAL
     Route: 048
  3. JANUVIA [Concomitant]
  4. TRILIPIX [Concomitant]
  5. PREVACID [Concomitant]
  6. LEVOTHYROXINE SODIUM [Concomitant]
  7. LISINOPRIL [Concomitant]
  8. SIMVASTATIN [Concomitant]
  9. TOPROL-XL [Concomitant]
  10. LIPITOR [Concomitant]

REACTIONS (1)
  - SYNCOPE [None]
